FAERS Safety Report 7540917-2 (Version None)
Quarter: 2011Q2

REPORT INFORMATION
  Report Type: 
  Country: None (occurrence: None)
  Receive Date: 20110610
  Receipt Date: 20110608
  Transmission Date: 20111010
  Serious: Yes (Other)
  Sender: FDA-Public Use
  Company Number: US-BRISTOL-MYERS SQUIBB COMPANY-15629884

PATIENT
  Age: 65 Year
  Sex: Male

DRUGS (13)
  1. AVODART [Concomitant]
  2. FINASTERIDE [Concomitant]
  3. ALLOPURINOL [Concomitant]
  4. AVALIDE [Concomitant]
  5. UROXATRAL [Concomitant]
  6. VERAMYST [Concomitant]
     Dosage: SPRAY
     Route: 045
  7. SIMVASTATIN [Concomitant]
  8. METAMUCIL-2 [Concomitant]
     Dosage: 3 DF = 3 CAPS
  9. KOMBIGLYZE XR [Suspect]
     Indication: TYPE 2 DIABETES MELLITUS
     Dosage: 1 DF:2.5/1000MG
     Dates: start: 20110228
  10. FUROSEMIDE [Concomitant]
  11. LIPITOR [Concomitant]
  12. CELEBREX [Concomitant]
  13. COZAAR [Concomitant]

REACTIONS (2)
  - VESTIBULAR NEURONITIS [None]
  - DIVERTICULITIS [None]
